FAERS Safety Report 20064411 (Version 1)
Quarter: 2021Q4

REPORT INFORMATION
  Report Type: Report from Study
  Country: US (occurrence: US)
  Receive Date: 20211112
  Receipt Date: 20211112
  Transmission Date: 20220304
  Serious: Yes (Other)
  Sender: FDA-Public Use
  Company Number: US-ABBVIE-21K-163-4156872-00

PATIENT
  Age: 61 Year
  Sex: Female
  Weight: 74.002 kg

DRUGS (3)
  1. RINVOQ [Suspect]
     Active Substance: UPADACITINIB
     Indication: Rheumatoid arthritis
     Dosage: ER TABS 30
     Route: 048
     Dates: start: 202008, end: 2021
  2. ESTROGEN NOS;METHYLTESTOSTERONE [Concomitant]
     Indication: Product used for unknown indication
  3. CORTEF [Concomitant]
     Active Substance: HYDROCORTISONE
     Indication: Product used for unknown indication

REACTIONS (1)
  - Foot operation [Unknown]

NARRATIVE: CASE EVENT DATE: 20211108
